FAERS Safety Report 9952375 (Version 1)
Quarter: 2014Q1

REPORT INFORMATION
  Report Type: Report from Study
  Country: US (occurrence: US)
  Receive Date: 20140304
  Receipt Date: 20140304
  Transmission Date: 20141002
  Serious: No
  Sender: FDA-Public Use
  Company Number: US-ABBVIE-13P-163-1073552-00

PATIENT
  Age: 48 Year
  Sex: Male

DRUGS (5)
  1. HUMIRA [Suspect]
     Indication: COLITIS ULCERATIVE
     Dosage: DAY 1
  2. HUMIRA [Suspect]
     Dosage: DAY 15
  3. HUMIRA [Suspect]
     Dosage: DAY 29
  4. HUMIRA [Suspect]
  5. LISINOPRIL [Concomitant]
     Indication: HYPERTENSION
     Dosage: 30 MG DAILY
     Route: 048

REACTIONS (3)
  - Incorrect dose administered [Recovering/Resolving]
  - Wrong technique in drug usage process [Recovering/Resolving]
  - Injection site pain [Recovering/Resolving]
